FAERS Safety Report 4288089-4 (Version None)
Quarter: 2004Q1

REPORT INFORMATION
  Report Type: 
  Country: None (occurrence: None)
  Receive Date: 20040209
  Receipt Date: 20031205
  Transmission Date: 20041129
  Serious: No
  Sender: FDA-Public Use
  Company Number: US-GLAXOSMITHKLINE-A0442187A

PATIENT
  Age: 31 Year
  Sex: Male

DRUGS (1)
  1. PAXIL [Suspect]
     Indication: CHEST PAIN
     Dosage: 12.5MG PER DAY
     Route: 048
     Dates: end: 20031201

REACTIONS (4)
  - DIZZINESS [None]
  - ERECTILE DYSFUNCTION [None]
  - FEELING ABNORMAL [None]
  - HEADACHE [None]
